FAERS Safety Report 6428002-4 (Version None)
Quarter: 2009Q4

REPORT INFORMATION
  Report Type: 
  Country: None (occurrence: None)
  Receive Date: 20091105
  Receipt Date: 20091027
  Transmission Date: 20100525
  Serious: Yes (Hospitalization)
  Sender: FDA-Public Use
  Company Number: US-BRISTOL-MYERS SQUIBB COMPANY-14835326

PATIENT
  Age: 56 Year
  Sex: Female

DRUGS (2)
  1. TRIAMCINOLONE ACETONIDE [Suspect]
     Indication: INTERVERTEBRAL DISC PROTRUSION
     Route: 008
  2. BUPIVACAINE [Suspect]
     Indication: INTERVERTEBRAL DISC PROTRUSION
     Dosage: STRENGTH: 0.5 PERCENT
     Route: 008

REACTIONS (2)
  - HYPOTENSION [None]
  - PARAPLEGIA [None]
